FAERS Safety Report 10022567 (Version 1)
Quarter: 2014Q1

REPORT INFORMATION
  Report Type: Spontaneous
  Country: US (occurrence: US)
  Receive Date: 20140319
  Receipt Date: 20140319
  Transmission Date: 20141002
  Serious: Yes (Hospitalization, Disabling)
  Sender: FDA-Public Use
  Company Number: US-ELI_LILLY_AND_COMPANY-US201403002932

PATIENT
  Sex: Male

DRUGS (3)
  1. HUMALOG LISPRO [Suspect]
     Indication: TYPE 2 DIABETES MELLITUS
     Dosage: 25 U, BID
     Route: 058
  2. HUMALOG LISPRO [Suspect]
     Dosage: 30 U, QD
     Route: 058
  3. LANTUS [Concomitant]

REACTIONS (6)
  - Pain in extremity [Unknown]
  - Local swelling [Unknown]
  - Cellulitis [Unknown]
  - Lymphoedema [Unknown]
  - Wound secretion [Unknown]
  - Wound [Unknown]
